FAERS Safety Report 5639931-3 (Version None)
Quarter: 2008Q1

REPORT INFORMATION
  Report Type: 
  Country: None (occurrence: None)
  Receive Date: 20080225
  Receipt Date: 20080214
  Transmission Date: 20080703
  Serious: Yes (Hospitalization)
  Sender: FDA-Public Use
  Company Number: B0508226A

PATIENT
  Age: 79 Year
  Sex: Female

DRUGS (6)
  1. PAXIL [Suspect]
     Indication: DEPRESSION
     Dosage: 10 MG/PER DAY/ ORAL
     Route: 048
     Dates: start: 20060704, end: 20060913
  2. PAXIL [Suspect]
     Indication: DEPRESSION
     Dosage: 20 MG/ PER DAY/ORAL
     Route: 048
     Dates: start: 20060914, end: 20071024
  3. PAXIL [Suspect]
     Indication: DEPRESSION
     Dosage: 30 MG/PER DAY/ORAL
     Route: 048
     Dates: start: 20071025, end: 20071105
  4. PAXIL [Suspect]
     Indication: DEPRESSION
     Dosage: 30 MG/PER DAY/ORAL
     Route: 048
     Dates: start: 20071106, end: 20071221
  5. ZOPICLONE [Concomitant]
  6. DONEPEZIL HCL [Concomitant]

REACTIONS (2)
  - FALL [None]
  - PARKINSONISM [None]
